FAERS Safety Report 16127644 (Version 1)
Quarter: 2019Q1

REPORT INFORMATION
  Report Type: Spontaneous
  Country: NL (occurrence: NL)
  Receive Date: 20190328
  Receipt Date: 20190328
  Transmission Date: 20190418
  Serious: Yes (Hospitalization)
  Sender: FDA-Public Use
  Company Number: NL-TEVA-2019-NL-1030458

PATIENT
  Age: 56 Year
  Sex: Female
  Weight: 47 kg

DRUGS (1)
  1. ALPRAZOLAMALPRAZOLAM TABLET 0,25MG [Suspect]
     Active Substance: ALPRAZOLAM
     Indication: ANXIETY
     Dosage: 10X / DAY 1 PIECE
     Dates: start: 2009

REACTIONS (1)
  - Gastrointestinal pain [Not Recovered/Not Resolved]

NARRATIVE: CASE EVENT DATE: 20190101
